FAERS Safety Report 6419204-1 (Version None)
Quarter: 2009Q4

REPORT INFORMATION
  Report Type: 
  Country: None (occurrence: None)
  Receive Date: 20091029
  Receipt Date: 20091022
  Transmission Date: 20100525
  Serious: Yes (Death)
  Sender: FDA-Public Use
  Company Number: DE-KINGPHARMUSA00001-K200900455

PATIENT
  Age: 83 Year
  Sex: Female

DRUGS (20)
  1. ALTACE [Suspect]
     Dosage: UNK
  2. ASPIRIN [Suspect]
     Dosage: UNK
  3. ALLOPURINOL [Suspect]
     Dosage: UNK
  4. BETASERON                          /05983301/ [Suspect]
     Dosage: UNK
     Route: 058
  5. GLYCERIN                           /00200601/ [Suspect]
     Dosage: UNK
  6. HYDROCHLOROTHIAZIDE [Suspect]
     Dosage: UNK
  7. IBUPROFEN [Suspect]
     Dosage: UNK
  8. LACTULOSE [Suspect]
     Dosage: UNK
  9. LIPITOR [Suspect]
     Dosage: UNK
  10. METOPROLOL [Suspect]
     Dosage: UNK
  11. PLAVIX [Suspect]
     Dosage: UNK
  12. QUININE [Suspect]
     Dosage: UNK
  13. SERTRALINE HCL [Suspect]
     Dosage: UNK
  14. TEMAZEPAM [Suspect]
     Dosage: UNK
  15. TERAZOSIN HCL [Suspect]
     Dosage: UNK
  16. TYLENOL W/ CODEINE NO. 2 [Suspect]
     Dosage: UNK
  17. NIFEDIPINE [Suspect]
     Dosage: UNK
  18. ROBAXACET [Suspect]
     Dosage: UNK
  19. MOTRIN IB [Suspect]
  20. TYLENOL W/ CODEINE NO. 3 [Suspect]

REACTIONS (6)
  - ABDOMINAL PAIN [None]
  - BACK PAIN [None]
  - JAUNDICE [None]
  - MALAISE [None]
  - MUSCULOSKELETAL STIFFNESS [None]
  - PANCREATIC CARCINOMA [None]
